FAERS Safety Report 20151676 (Version 4)
Quarter: 2022Q3

REPORT INFORMATION
  Report Type: Report from Study
  Country: US (occurrence: US)
  Receive Date: 20211206
  Receipt Date: 20220912
  Transmission Date: 20221027
  Serious: No
  Sender: FDA-Public Use
  Company Number: US-NOVARTISTESTPH-NVSC2021US278601

PATIENT
  Age: 48 Year
  Sex: Female

DRUGS (1)
  1. COSENTYX [Suspect]
     Active Substance: SECUKINUMAB
     Indication: Axial spondyloarthritis
     Dosage: UNK
     Route: 065

REACTIONS (6)
  - Salivary hypersecretion [Unknown]
  - Dyspnoea [Unknown]
  - Hyperhidrosis [Unknown]
  - Pain [Unknown]
  - Diarrhoea [Unknown]
  - Product supply issue [Unknown]
